FAERS Safety Report 15254719 (Version 1)
Quarter: 2018Q3

REPORT INFORMATION
  Report Type: Spontaneous
  Country: US (occurrence: US)
  Receive Date: 20180808
  Receipt Date: 20180808
  Transmission Date: 20181010
  Serious: No
  Sender: FDA-Public Use
  Company Number: US-SA-2018SA209803

PATIENT
  Age: 86 Year
  Sex: Male

DRUGS (1)
  1. MULTAQ [Suspect]
     Active Substance: DRONEDARONE
     Indication: CARDIOVASCULAR DISORDER
     Dosage: 1/2 TAB BID WITH FOOD
     Route: 065
     Dates: start: 20180713

REACTIONS (1)
  - No adverse event [Unknown]
